FAERS Safety Report 13586070 (Version 4)
Quarter: 2017Q4

REPORT INFORMATION
  Report Type: Spontaneous
  Country: US (occurrence: US)
  Receive Date: 20170526
  Receipt Date: 20171116
  Transmission Date: 20180320
  Serious: Yes (Hospitalization, Other)
  Sender: FDA-Public Use
  Company Number: US-REGENERON PHARMACEUTICALS, INC.-2017-16107

PATIENT

DRUGS (17)
  1. EYLEA [Suspect]
     Active Substance: AFLIBERCEPT
     Dosage: 2 MG, EVERY 4 TO 6 WEEKS BOTH EYES
     Route: 031
     Dates: start: 20170215, end: 20170215
  2. EYLEA [Suspect]
     Active Substance: AFLIBERCEPT
     Dosage: 2 MG, EVERY 4 TO 6 WEEKS, OD
     Route: 031
     Dates: start: 20170724, end: 20170724
  3. ATORVASTATIN [Concomitant]
     Active Substance: ATORVASTATIN
     Indication: PRODUCT USED FOR UNKNOWN INDICATION
     Dosage: 10 MG, UNK
  4. CLONAZEPAM. [Concomitant]
     Active Substance: CLONAZEPAM
     Indication: PRODUCT USED FOR UNKNOWN INDICATION
     Dosage: 0.5 MG, UNK
  5. PRESERVISION AREDS [Concomitant]
     Active Substance: MINERALS\VITAMINS
     Indication: PRODUCT USED FOR UNKNOWN INDICATION
     Dosage: 1 ORAL,  BID
     Route: 048
  6. EYLEA [Suspect]
     Active Substance: AFLIBERCEPT
     Dosage: 2 MG, EVERY 4 TO 6 WEEKS  BOTH EYES
     Dates: start: 20170413, end: 20170413
  7. EYLEA [Suspect]
     Active Substance: AFLIBERCEPT
     Dosage: 2 MG, EVERY 4 TO 6 WEEKS BOTH EYES
     Route: 031
     Dates: start: 201701, end: 201701
  8. EYLEA [Suspect]
     Active Substance: AFLIBERCEPT
     Dosage: 2 MG, EVERY 4 TO 6 WEEKS, BOTH EYES
     Route: 031
     Dates: start: 20170427, end: 20170427
  9. EYLEA [Suspect]
     Active Substance: AFLIBERCEPT
     Dosage: 2 MG, EVERY 4 TO 6 WEEKS
     Route: 031
  10. EYLEA [Suspect]
     Active Substance: AFLIBERCEPT
     Indication: NEOVASCULAR AGE-RELATED MACULAR DEGENERATION
     Dosage: EVERY 4 TO 6 WEEKS, BOTH EYES
     Route: 031
     Dates: start: 20150804
  11. EYLEA [Suspect]
     Active Substance: AFLIBERCEPT
     Dosage: 2 MG, EVERY 4 TO 6 WEEKS, BOTH EYES
     Route: 031
     Dates: start: 20170511, end: 20170511
  12. LEVOTHYROXINE. [Concomitant]
     Active Substance: LEVOTHYROXINE
     Indication: PRODUCT USED FOR UNKNOWN INDICATION
     Dosage: 50 MG, UNK
  13. EYLEA [Suspect]
     Active Substance: AFLIBERCEPT
     Dosage: 2 MG, EVERY 4 TO 6 WEEKS ONE EYE
     Route: 031
     Dates: start: 20170303, end: 20170303
  14. EYLEA [Suspect]
     Active Substance: AFLIBERCEPT
     Dosage: 2 MG, EVERY 4 TO 6 WEEKS, BOTH EYES
     Route: 031
     Dates: start: 201705, end: 201705
  15. EYLEA [Suspect]
     Active Substance: AFLIBERCEPT
     Dosage: 2 MG, EVERY 4 TO 6 WEEKS, OS
     Route: 031
     Dates: start: 20170726, end: 20170726
  16. EYLEA [Suspect]
     Active Substance: AFLIBERCEPT
     Dosage: 2 MG, EVERY 4 TO 6 WEEKS, ONE EYE
     Dates: start: 20170315, end: 20170315
  17. PAROXETINE. [Concomitant]
     Active Substance: PAROXETINE
     Indication: PRODUCT USED FOR UNKNOWN INDICATION
     Dosage: 10 MG, UNK

REACTIONS (10)
  - Lacrimation increased [Not Recovered/Not Resolved]
  - Injection site discomfort [Recovered/Resolved]
  - Eye pain [Recovered/Resolved]
  - Hypersensitivity [Unknown]
  - Photophobia [Recovered/Resolved]
  - Refusal of treatment by patient [Recovered/Resolved]
  - Swelling face [Unknown]
  - Lip swelling [Unknown]
  - Anterior chamber inflammation [Recovered/Resolved]
  - Visual impairment [Recovered/Resolved]

NARRATIVE: CASE EVENT DATE: 2017
